FAERS Safety Report 4441574-4 (Version None)
Quarter: 2004Q3

REPORT INFORMATION
  Report Type: 
  Country: None (occurrence: None)
  Receive Date: 20040728
  Receipt Date: 20040507
  Transmission Date: 20050211
  Serious: Yes (Other)
  Sender: FDA-Public Use
  Company Number: USA040567154

PATIENT
  Age: 26 Year
  Sex: Male
  Weight: 143 kg

DRUGS (2)
  1. STRATTERA [Suspect]
     Dosage: 320 MG DAY
  2. CREATINE [Concomitant]

REACTIONS (4)
  - BLOOD PRESSURE INCREASED [None]
  - HEADACHE [None]
  - INTENTIONAL MISUSE [None]
  - INTENTIONAL OVERDOSE [None]
